FAERS Safety Report 7190180-X (Version None)
Quarter: 2010Q4

REPORT INFORMATION
  Report Type: 
  Country: None (occurrence: None)
  Receive Date: 20101210
  Receipt Date: 20101129
  Transmission Date: 20110411
  Serious: Yes (Disabling)
  Sender: FDA-Public Use
  Company Number: TR-1184269

PATIENT
  Age: 36 Year
  Sex: Male

DRUGS (1)
  1. ALCAINE [Suspect]
     Dosage: OPHTHALMIC
     Route: 047

REACTIONS (1)
  - VISUAL ACUITY REDUCED [None]
